FAERS Safety Report 5006607-5 (Version None)
Quarter: 2006Q2

REPORT INFORMATION
  Report Type: 
  Country: None (occurrence: None)
  Receive Date: 20060519
  Receipt Date: 20060227
  Transmission Date: 20061013
  Serious: Yes (Other)
  Sender: FDA-Public Use
  Company Number: FR-GLAXOSMITHKLINE-B0414180A

PATIENT
  Age: 31 Year
  Sex: Female
  Weight: 51 kg

DRUGS (1)
  1. PAROXETINE HYDROCHLORIDE [Suspect]
     Dosage: 20MG PER DAY
     Route: 048
     Dates: start: 20030101

REACTIONS (6)
  - FATIGUE [None]
  - GAMMA-GLUTAMYLTRANSFERASE INCREASED [None]
  - HAEMOGLOBIN DECREASED [None]
  - HEPATIC ENZYME INCREASED [None]
  - SLEEP DISORDER [None]
  - WHITE BLOOD CELL COUNT INCREASED [None]
